FAERS Safety Report 6212635-4 (Version None)
Quarter: 2009Q2

REPORT INFORMATION
  Report Type: 
  Country: None (occurrence: None)
  Receive Date: 20090603
  Receipt Date: 20090528
  Transmission Date: 20091009
  Serious: Yes (Life-Threatening, Other)
  Sender: FDA-Public Use
  Company Number: JP-AMGEN-US343250

PATIENT
  Sex: Female

DRUGS (4)
  1. ENBREL [Suspect]
     Indication: RHEUMATOID ARTHRITIS
     Route: 058
     Dates: start: 20080407, end: 20090324
  2. ALINAMIN F [Concomitant]
     Route: 048
  3. VITAMEDIN [Concomitant]
     Route: 048
  4. GLAKAY [Concomitant]
     Route: 048

REACTIONS (2)
  - TUBERCULOSIS [None]
  - VULVOVAGINAL DISCOMFORT [None]
